FAERS Safety Report 18041487 (Version 2)
Quarter: 2020Q4

REPORT INFORMATION
  Report Type: Report from Study
  Country: None (occurrence: AU)
  Receive Date: 20200719
  Receipt Date: 20201005
  Transmission Date: 20210113
  Serious: Yes (Other)
  Sender: FDA-Public Use
  Company Number: AU-ABBVIE-20K-008-3243551-00

PATIENT
  Sex: Female

DRUGS (1)
  1. IMBRUVICA [Suspect]
     Active Substance: IBRUTINIB
     Indication: CHRONIC LYMPHOCYTIC LEUKAEMIA
     Route: 065
     Dates: start: 20190301

REACTIONS (9)
  - Ear disorder [Not Recovered/Not Resolved]
  - Viral infection [Recovering/Resolving]
  - Cataract [Not Recovered/Not Resolved]
  - Dizziness [Not Recovered/Not Resolved]
  - Fatigue [Not Recovered/Not Resolved]
  - Dysuria [Recovered/Resolved]
  - Alopecia [Unknown]
  - Neuropathy peripheral [Unknown]
  - Lymphoedema [Not Recovered/Not Resolved]
